FAERS Safety Report 10418042 (Version 1)
Quarter: 2014Q3

REPORT INFORMATION
  Report Type: Spontaneous
  Country: US (occurrence: US)
  Receive Date: 20140829
  Receipt Date: 20140829
  Transmission Date: 20150326
  Serious: Yes (Other)
  Sender: FDA-Public Use
  Company Number: US-BAYER-2014-127667

PATIENT
  Age: 56 Year
  Sex: Male
  Weight: 104 kg

DRUGS (3)
  1. ALEVE [Suspect]
     Active Substance: NAPROXEN SODIUM
     Indication: PAIN
     Dosage: 1 UNIT, TWICE DAILY
     Route: 048
     Dates: start: 2011
  2. BAYER ASPIRIN SUGAR FREE LOW DOSE ENTERIC [Concomitant]
     Indication: ISCHAEMIC HEART DISEASE PROPHYLAXIS
  3. PAIN STOPPER EXTRA [Suspect]
     Active Substance: ACETAMINOPHEN\ASPIRIN\CAFFEINE\SALICYLAMIDE
     Indication: PAIN
     Dosage: 2 UNITS, FOUR TIMES DAILY
     Route: 048
     Dates: start: 2007, end: 2011

REACTIONS (5)
  - Medication error [None]
  - Cerebrovascular accident [Recovered/Resolved]
  - Myocardial infarction [Recovered/Resolved]
  - Incorrect drug administration duration [None]
  - Incorrect drug administration duration [None]

NARRATIVE: CASE EVENT DATE: 2007
